FAERS Safety Report 17004117 (Version 1)
Quarter: 2019Q4

REPORT INFORMATION
  Report Type: Not Available
  Country: CA (occurrence: CA)
  Receive Date: 20191107
  Receipt Date: 20191107
  Transmission Date: 20200122
  Serious: Yes (Other)
  Sender: FDA-Public Use
  Company Number: CA-CELGENEUS-CAN-20191100639

PATIENT
  Age: 77 Year
  Sex: Female

DRUGS (3)
  1. DEXAMETHASONE. [Suspect]
     Active Substance: DEXAMETHASONE
     Indication: PRODUCT USED FOR UNKNOWN INDICATION
     Route: 065
  2. REVLIMID [Suspect]
     Active Substance: LENALIDOMIDE
     Indication: PRODUCT USED FOR UNKNOWN INDICATION
     Route: 048
  3. IXAZOMIB [Suspect]
     Active Substance: IXAZOMIB
     Indication: PLASMA CELL MYELOMA
     Dosage: 3 MILLIGRAM
     Route: 048

REACTIONS (5)
  - Renal failure [Unknown]
  - Aphonia [Unknown]
  - Malaise [Unknown]
  - Ageusia [Unknown]
  - Rash [Unknown]
